FAERS Safety Report 7290347 (Version 7)
Quarter: 2013Q2

REPORT INFORMATION
  Report Type: Report from Study
  Country: CA (occurrence: CA)
  Receive Date: 20100223
  Receipt Date: 20130606
  Transmission Date: 20140414
  Serious: Yes (Other)
  Sender: FDA-Public Use
  Company Number: PHHY2010CA08093

PATIENT
  Age: 59 Year
  Sex: Male

DRUGS (3)
  1. SANDOSTATIN LAR [Suspect]
     Indication: CARCINOID TUMOUR OF THE SMALL BOWEL
     Dosage: 30 MG, EVERY 4 WEEKS
     Route: 030
     Dates: start: 20091214
  2. SANDOSTATIN LAR [Suspect]
     Dosage: 40 MG, EVERY 4 WEEKS
     Route: 030
  3. SANDOSTATIN LAR [Suspect]
     Dosage: 40 MG, QMO
     Route: 030

REACTIONS (6)
  - Chest pain [Recovering/Resolving]
  - Mass [Unknown]
  - Abdominal pain [Recovering/Resolving]
  - Weight decreased [Unknown]
  - Influenza [Unknown]
  - Diarrhoea [Recovered/Resolved]
